FAERS Safety Report 21798297 (Version 2)
Quarter: 2023Q1

REPORT INFORMATION
  Report Type: Report from Study
  Country: US (occurrence: US)
  Receive Date: 20221230
  Receipt Date: 20230102
  Transmission Date: 20230417
  Serious: No
  Sender: FDA-Public Use
  Company Number: US-002147023-NVSC2022US301194

PATIENT
  Age: 80 Year
  Sex: Female
  Weight: 79.38 kg

DRUGS (2)
  1. LEQVIO [Suspect]
     Active Substance: INCLISIRAN SODIUM
     Indication: Blood cholesterol increased
     Dosage: 284 MG (FREQUENCY: AFTER THE 1ST DOSE, EVERY SIX MONTHS)
     Route: 058
     Dates: start: 20220914
  2. LEQVIO [Suspect]
     Active Substance: INCLISIRAN SODIUM
     Dosage: UNK (3 MONTHS AGO)
     Route: 065

REACTIONS (2)
  - Dysuria [Recovered/Resolved]
  - Oropharyngeal pain [Unknown]

NARRATIVE: CASE EVENT DATE: 20220914
